FAERS Safety Report 6965204-2 (Version None)
Quarter: 2010Q3

REPORT INFORMATION
  Report Type: 
  Country: None (occurrence: None)
  Receive Date: 20100903
  Receipt Date: 20100830
  Transmission Date: 20110219
  Serious: Yes (Death, Hospitalization, Other)
  Sender: FDA-Public Use
  Company Number: US-ASTRAZENECA-2008UW12623

PATIENT
  Age: 23 Year
  Sex: Male

DRUGS (32)
  1. SEROQUEL [Interacting]
     Indication: SUSPICIOUSNESS
     Route: 048
  2. SEROQUEL [Interacting]
     Indication: AGITATION
     Route: 048
  3. SEROQUEL [Interacting]
     Indication: IRRITABILITY
     Route: 048
  4. SEROQUEL [Interacting]
     Indication: INSOMNIA
     Route: 048
  5. SEROQUEL [Interacting]
     Indication: POST-TRAUMATIC STRESS DISORDER
     Route: 048
  6. SEROQUEL [Interacting]
     Route: 048
     Dates: start: 20070101
  7. SEROQUEL [Interacting]
     Route: 048
     Dates: start: 20070101
  8. SEROQUEL [Interacting]
     Route: 048
     Dates: start: 20070101
  9. SEROQUEL [Interacting]
     Route: 048
     Dates: start: 20070101
  10. SEROQUEL [Interacting]
     Route: 048
     Dates: start: 20070101
  11. SEROQUEL [Interacting]
     Route: 048
  12. SEROQUEL [Interacting]
     Route: 048
  13. SEROQUEL [Interacting]
     Route: 048
  14. SEROQUEL [Interacting]
     Route: 048
  15. SEROQUEL [Interacting]
     Route: 048
  16. SEROQUEL [Interacting]
     Route: 048
  17. SEROQUEL [Interacting]
     Route: 048
  18. SEROQUEL [Interacting]
     Route: 048
  19. SEROQUEL [Interacting]
     Route: 048
  20. SEROQUEL [Interacting]
     Route: 048
  21. PAROXETINE HCL [Interacting]
  22. PAROXETINE HCL [Interacting]
  23. PAROXETINE HCL [Interacting]
  24. PAROXETINE HCL [Interacting]
  25. CLONAZEPAM [Suspect]
  26. CLONAZEPAM [Suspect]
  27. CLONAZEPAM [Suspect]
  28. VALPROIC ACID [Suspect]
     Indication: IRRITABILITY
  29. VALPROIC ACID [Suspect]
     Indication: ABNORMAL BEHAVIOUR
  30. OXCARBAZEPINE [Suspect]
  31. MIRTAZAPINE [Suspect]
  32. ESCITALOPRAM [Concomitant]

REACTIONS (20)
  - ANGER [None]
  - ANXIETY [None]
  - BIPOLAR DISORDER [None]
  - DEATH [None]
  - DIARRHOEA [None]
  - DISORIENTATION [None]
  - DRUG INTERACTION [None]
  - DRUG TOXICITY [None]
  - DYSARTHRIA [None]
  - INCORRECT DOSE ADMINISTERED [None]
  - IRRITABILITY [None]
  - NIGHTMARE [None]
  - OFF LABEL USE [None]
  - OVERDOSE [None]
  - POOR QUALITY SLEEP [None]
  - TEARFULNESS [None]
  - TREATMENT NONCOMPLIANCE [None]
  - TREMOR [None]
  - WEIGHT INCREASED [None]
  - WRONG DRUG ADMINISTERED [None]
